FAERS Safety Report 7208422-0 (Version None)
Quarter: 2011Q1

REPORT INFORMATION
  Report Type: 
  Country: None (occurrence: None)
  Receive Date: 20110104
  Receipt Date: 20101222
  Transmission Date: 20110831
  Serious: Yes (Other)
  Sender: FDA-Public Use
  Company Number: US-ELI_LILLY_AND_COMPANY-US201012006180

PATIENT
  Sex: Female

DRUGS (3)
  1. ZYPREXA [Suspect]
     Indication: HALLUCINATION
     Dosage: 7.5 MG, DAILY (1/D)
  2. CYMBALTA [Suspect]
     Indication: DEPRESSION
     Dosage: 60 MG, DAILY (1/D)
     Dates: start: 20080101
  3. ANALGESICS [Concomitant]
     Indication: PAIN

REACTIONS (4)
  - OFF LABEL USE [None]
  - RENAL DISORDER [None]
  - HOSPICE CARE [None]
  - VEIN DISORDER [None]
